FAERS Safety Report 5976505-9 (Version None)
Quarter: 2008Q4

REPORT INFORMATION
  Report Type: 
  Country: None (occurrence: None)
  Receive Date: 20081126
  Receipt Date: 20081121
  Transmission Date: 20090506
  Serious: Yes (Other)
  Sender: FDA-Public Use
  Company Number: JPI-P-005470

PATIENT
  Age: 28 Year
  Sex: Female

DRUGS (1)
  1. XYREM [Suspect]
     Indication: DRUG USE FOR UNKNOWN INDICATION
     Dosage: 6 GM (3 GM,2 IN 1 D), ORAL; 9 GM (4.5 GM,2 IN 1 D), ORAL
     Dates: start: 20080813, end: 20081109

REACTIONS (1)
  - MENINGITIS [None]
